FAERS Safety Report 11340946 (Version 1)
Quarter: 2015Q3

REPORT INFORMATION
  Report Type: Spontaneous
  Country: US (occurrence: US)
  Receive Date: 20150805
  Receipt Date: 20150805
  Transmission Date: 20151125
  Serious: No
  Sender: FDA-Public Use
  Company Number: US-JNJFOC-20150700244

PATIENT
  Age: 50 Year
  Sex: Female
  Weight: 86.18 kg

DRUGS (4)
  1. NIZORAL A-D [Suspect]
     Active Substance: KETOCONAZOLE
     Indication: ECZEMA
     Route: 061
  2. NIZORAL A-D [Suspect]
     Active Substance: KETOCONAZOLE
     Indication: ECZEMA
     Route: 061
  3. NIZORAL A-D [Suspect]
     Active Substance: KETOCONAZOLE
     Indication: ECZEMA
     Route: 061
  4. NIZORAL A-D [Suspect]
     Active Substance: KETOCONAZOLE
     Indication: ECZEMA
     Route: 061

REACTIONS (1)
  - Expired product administered [Unknown]
